FAERS Safety Report 8328399-4 (Version None)
Quarter: 2012Q2

REPORT INFORMATION
  Report Type: 
  Country: None (occurrence: None)
  Receive Date: 20120502
  Receipt Date: 20100706
  Transmission Date: 20120825
  Serious: No
  Sender: FDA-Public Use
  Company Number: US-TEVA-2010003612

PATIENT
  Sex: Male
  Weight: 79.45 kg

DRUGS (9)
  1. HYDROCHLOROTHIAZIDE [Concomitant]
     Dates: start: 19950101
  2. TRUSOPT [Concomitant]
     Dates: start: 19900101
  3. KLOR-CON [Concomitant]
     Dates: start: 19950101
  4. LIPITOR [Concomitant]
     Dates: start: 20020101
  5. VERAPAMIL [Concomitant]
     Dates: start: 19950101
  6. BETOPTIC S [Concomitant]
     Dates: start: 19950101
  7. DOXAZOSIN MESYLATE [Concomitant]
     Dates: start: 19900101
  8. PRILOSEC [Concomitant]
     Dates: start: 20020101
  9. NUVIGIL [Suspect]
     Indication: SLEEP APNOEA SYNDROME
     Dosage: 150 MILLIGRAM;
     Route: 048

REACTIONS (3)
  - PALPITATIONS [None]
  - DRUG TOLERANCE [None]
  - CHEST DISCOMFORT [None]
